FAERS Safety Report 15658549 (Version 4)
Quarter: 2020Q3

REPORT INFORMATION
  Report Type: Spontaneous
  Country: US (occurrence: US)
  Receive Date: 20181126
  Receipt Date: 20200909
  Transmission Date: 20201102
  Serious: No
  Sender: FDA-Public Use
  Company Number: US-PFIZER INC-2018239460

PATIENT
  Age: 9 Year
  Sex: Male

DRUGS (3)
  1. GENOTROPIN [Suspect]
     Active Substance: SOMATROPIN
     Dosage: UNK
  2. GENOTROPIN [Suspect]
     Active Substance: SOMATROPIN
     Dosage: 1.6 MG, [6 DAYS A WEEK]
     Dates: start: 20180602
  3. GENOTROPIN [Suspect]
     Active Substance: SOMATROPIN
     Dosage: 1.6 MG, (ONCE DAILY 6 DAYS A WEEK)
     Dates: start: 2018

REACTIONS (3)
  - Insulin-like growth factor increased [Unknown]
  - Haemoglobin increased [Unknown]
  - Bone density increased [Unknown]

NARRATIVE: CASE EVENT DATE: 20181026
